FAERS Safety Report 13782230 (Version 1)
Quarter: 2017Q3

REPORT INFORMATION
  Report Type: Spontaneous
  Country: US (occurrence: US)
  Receive Date: 20170724
  Receipt Date: 20170724
  Transmission Date: 20171127
  Serious: No
  Sender: FDA-Public Use
  Company Number: US-IPSEN BIOPHARMACEUTICALS, INC.-2016-05088

PATIENT
  Sex: Female
  Weight: 70 kg

DRUGS (13)
  1. ASPIRIN. [Concomitant]
     Active Substance: ASPIRIN
     Dosage: 81 MG
  2. IRON [Concomitant]
     Active Substance: IRON
  3. IPRATROPIUM BROMIDE INHALED SPRAY [Concomitant]
  4. VITAMIN D [Concomitant]
     Active Substance: CHOLECALCIFEROL
  5. SOMATULINE DEPOT [Suspect]
     Active Substance: LANREOTIDE ACETATE
     Indication: GROWTH HORMONE-PRODUCING PITUITARY TUMOUR
     Dosage: 90 MG
     Route: 058
     Dates: start: 201603, end: 201605
  6. FLAXSED OIL [Concomitant]
  7. OXYGEN THERAPY [Concomitant]
     Active Substance: OXYGEN
  8. LISINOPRIL. [Concomitant]
     Active Substance: LISINOPRIL
  9. OMEPRAZOLE. [Concomitant]
     Active Substance: OMEPRAZOLE
  10. FLUTICASONE SPRAY [Concomitant]
     Active Substance: FLUTICASONE
  11. LASIX [Concomitant]
     Active Substance: FUROSEMIDE
  12. CPAP [Concomitant]
     Active Substance: DEVICE
  13. SOMATULINE DEPOT [Suspect]
     Active Substance: LANREOTIDE ACETATE
     Dosage: 120 MG
     Route: 058
     Dates: start: 201606

REACTIONS (2)
  - Vitamin B12 increased [Not Recovered/Not Resolved]
  - Drug ineffective [Unknown]
